FAERS Safety Report 17584048 (Version 1)
Quarter: 2020Q1

REPORT INFORMATION
  Report Type: Spontaneous
  Country: CA (occurrence: CA)
  Receive Date: 20200326
  Receipt Date: 20200326
  Transmission Date: 20200409
  Serious: Yes (Death)
  Sender: FDA-Public Use
  Company Number: CA-TEVA-2020-CA-1213724

PATIENT
  Age: 64 Year
  Sex: Male
  Weight: 97 kg

DRUGS (24)
  1. AMIODARONE [Suspect]
     Active Substance: AMIODARONE
     Indication: CARDIAC PACEMAKER INSERTION
     Dosage: 200 MILLIGRAM DAILY;
     Route: 048
  2. EPREX [Concomitant]
     Active Substance: ERYTHROPOIETIN
  3. FLUTICASONE. [Concomitant]
     Active Substance: FLUTICASONE
  4. INSULIN HUMAN [Concomitant]
     Active Substance: INSULIN HUMAN
  5. PANTOPRAZOLE [Concomitant]
     Active Substance: PANTOPRAZOLE
  6. MIDODRINE [Concomitant]
     Active Substance: MIDODRINE
  7. ALENDRONATE [Concomitant]
     Active Substance: ALENDRONATE SODIUM
  8. SEVELAMER [Concomitant]
     Active Substance: SEVELAMER
  9. AMIODARONE [Suspect]
     Active Substance: AMIODARONE
     Indication: ATRIAL FIBRILLATION
     Route: 065
  10. BETAHISTINE [Concomitant]
     Active Substance: BETAHISTINE
  11. CALCIUM CARBONATE. [Concomitant]
     Active Substance: CALCIUM CARBONATE
  12. TYLENOL WITH CODEINE [Concomitant]
     Active Substance: ACETAMINOPHEN\CODEINE PHOSPHATE
  13. DIPHENHYDRAMINE. [Concomitant]
     Active Substance: DIPHENHYDRAMINE
  14. FENOFIBRATE. [Concomitant]
     Active Substance: FENOFIBRATE
  15. FERROUS GLUCONATE [Concomitant]
     Active Substance: FERROUS GLUCONATE
  16. HYDROMORPHONE [Concomitant]
     Active Substance: HYDROMORPHONE
  17. ACETAMINOPHEN. [Concomitant]
     Active Substance: ACETAMINOPHEN
  18. DIMENHYDRINATE. [Concomitant]
     Active Substance: DIMENHYDRINATE
  19. FUROSEMIDE. [Concomitant]
     Active Substance: FUROSEMIDE
  20. REPLAVITE [PYRIDOXINE HYDROCHLORIDE] [Concomitant]
  21. BUDESONIDE. [Concomitant]
     Active Substance: BUDESONIDE
  22. ONE ALPHA [Concomitant]
     Active Substance: ALFACALCIDOL
  23. PAROXETINE. [Concomitant]
     Active Substance: PAROXETINE
  24. ROSUVASTATIN. [Concomitant]
     Active Substance: ROSUVASTATIN

REACTIONS (3)
  - International normalised ratio increased [Fatal]
  - Hepatic failure [Fatal]
  - Non-alcoholic steatohepatitis [Fatal]
